FAERS Safety Report 6049709-7 (Version None)
Quarter: 2009Q1

REPORT INFORMATION
  Report Type: 
  Country: None (occurrence: None)
  Receive Date: 20090121
  Receipt Date: 20080313
  Transmission Date: 20090719
  Serious: No
  Sender: FDA-Public Use
  Company Number: HQWYE789826JUN03

PATIENT
  Age: 75 Year
  Sex: Female

DRUGS (2)
  1. PREMPRO [Suspect]
     Dosage: ORAL
     Route: 048
  2. CYCRIN [Suspect]

REACTIONS (2)
  - MAMMOGRAM ABNORMAL [None]
  - SMEAR CERVIX ABNORMAL [None]
